FAERS Safety Report 17597789 (Version 4)
Quarter: 2021Q1

REPORT INFORMATION
  Report Type: Spontaneous
  Country: US (occurrence: US)
  Receive Date: 20200330
  Receipt Date: 20210202
  Transmission Date: 20210419
  Serious: No
  Sender: FDA-Public Use
  Company Number: US-PFIZER INC-2019414571

PATIENT
  Age: 79 Year
  Sex: Female
  Weight: 69 kg

DRUGS (1)
  1. LYRICA [Suspect]
     Active Substance: PREGABALIN
     Indication: NEPHROPATHY
     Dosage: 50 MG(FREQUENCY: 2 @ 7 HS + 2 @ 9 HS)

REACTIONS (4)
  - Intentional product misuse [Unknown]
  - Off label use [Unknown]
  - Anxiety [Unknown]
  - Drug ineffective for unapproved indication [Unknown]
